FAERS Safety Report 21437676 (Version 2)
Quarter: 2022Q4

REPORT INFORMATION
  Report Type: Spontaneous
  Country: US (occurrence: US)
  Receive Date: 20221011
  Receipt Date: 20221018
  Transmission Date: 20230113
  Serious: Yes (Life-Threatening, Hospitalization, Other)
  Sender: FDA-Public Use
  Company Number: US-009507513-2210USA001266

PATIENT
  Age: 78 Year
  Sex: Female

DRUGS (2)
  1. KEYTRUDA [Suspect]
     Active Substance: PEMBROLIZUMAB
     Indication: Lung neoplasm malignant
     Dosage: 1 INFUSION EVERY 3 WEEKS/200 MG EVERY 21 DAYS
     Route: 042
     Dates: start: 202111, end: 202208
  2. MODERNA COVID-19 VACCINE [Suspect]
     Active Substance: ELASOMERAN

REACTIONS (4)
  - Immune system disorder [Not Recovered/Not Resolved]
  - Blood disorder [Not Recovered/Not Resolved]
  - COVID-19 [Unknown]
  - Vaccination failure [Unknown]

NARRATIVE: CASE EVENT DATE: 20220801
